FAERS Safety Report 6863040-9 (Version None)
Quarter: 2010Q3

REPORT INFORMATION
  Report Type: 
  Country: None (occurrence: None)
  Receive Date: 20100721
  Receipt Date: 20100715
  Transmission Date: 20110219
  Serious: Yes (Other)
  Sender: FDA-Public Use
  Company Number: FR-MERCK-1007FRA00036

PATIENT
  Age: 73 Year
  Sex: Male
  Weight: 63 kg

DRUGS (4)
  1. ISENTRESS [Suspect]
     Indication: HIV INFECTION
     Route: 048
     Dates: start: 20090429
  2. ATAZANAVIR SULFATE [Suspect]
     Indication: HIV INFECTION
     Route: 048
     Dates: start: 20050716
  3. ROSUVASTATIN CALCIUM [Concomitant]
     Indication: DYSLIPIDAEMIA
     Route: 065
  4. PIOGLITAZONE HYDROCHLORIDE [Concomitant]
     Indication: DIABETES MELLITUS
     Route: 065

REACTIONS (1)
  - LIPODYSTROPHY ACQUIRED [None]
